FAERS Safety Report 11101571 (Version 2)
Quarter: 2015Q2

REPORT INFORMATION
  Report Type: Report from Study
  Country: US (occurrence: US)
  Receive Date: 20150508
  Receipt Date: 20150601
  Transmission Date: 20150821
  Serious: Yes (Death, Hospitalization)
  Sender: FDA-Public Use
  Company Number: US-INCYTE CORPORATION-2015IN001894

PATIENT
  Age: 72 Year
  Sex: Male
  Weight: 72.6 kg

DRUGS (11)
  1. NATURAL TEARS [Concomitant]
     Active Substance: POLYVINYL ALCOHOL\POVIDONE
     Indication: VISION BLURRED
     Dosage: 15 ML, PRN (BOTH EYES)
     Route: 047
     Dates: start: 20150407
  2. LOMOTIL [Concomitant]
     Active Substance: ATROPINE SULFATE\DIPHENOXYLATE HYDROCHLORIDE
     Indication: DIARRHOEA
     Dosage: 2.5 MG, QD
     Route: 048
     Dates: start: 2013
  3. AZITHROMYCIN [Concomitant]
     Active Substance: AZITHROMYCIN ANHYDROUS
     Indication: BLEPHARITIS
     Dosage: 2.5 ML, QD (LEFT EYE)
     Route: 047
     Dates: start: 20150407
  4. RAMIPRIL. [Concomitant]
     Active Substance: RAMIPRIL
     Indication: HYPERTENSION
     Dosage: 5 MG, QD
     Route: 048
     Dates: start: 2013, end: 20150317
  5. CAPECITABINE. [Suspect]
     Active Substance: CAPECITABINE
     Indication: PANCREATIC CARCINOMA METASTATIC
     Dosage: 2000 MG, QD (2 QAM, 2 QPM)
     Route: 048
     Dates: start: 20150310, end: 20150430
  6. SIMETHICONE [Concomitant]
     Active Substance: DIMETHICONE\SILICON DIOXIDE\SIMETHICONE
     Indication: GASTROOESOPHAGEAL REFLUX DISEASE
     Dosage: 125 MG, PRN
     Route: 048
     Dates: start: 2009
  7. LIPITOR [Concomitant]
     Active Substance: ATORVASTATIN CALCIUM
     Indication: HYPERLIPIDAEMIA
     Dosage: 5 MG, QD
     Route: 048
     Dates: start: 2014, end: 20150317
  8. XARELTO [Concomitant]
     Active Substance: RIVAROXABAN
     Indication: ANTICOAGULANT THERAPY
     Dosage: 15 MG, BID
     Route: 048
     Dates: start: 20150227, end: 20150317
  9. INCB018424 (RUXOLITINIB) [Suspect]
     Active Substance: RUXOLITINIB
     Indication: PANCREATIC CARCINOMA METASTATIC
     Dosage: 15 MG, BID
     Route: 048
     Dates: start: 20150310, end: 20150427
  10. PRILOSEC [Concomitant]
     Active Substance: OMEPRAZOLE MAGNESIUM
     Indication: GASTROOESOPHAGEAL REFLUX DISEASE
     Dosage: 20 MG, QD
     Route: 048
     Dates: start: 2009
  11. CREON [Concomitant]
     Active Substance: PANCRELIPASE AMYLASE\PANCRELIPASE LIPASE\PANCRELIPASE PROTEASE
     Indication: ENZYME SUPPLEMENTATION
     Dosage: 24000 UT, QD
     Route: 048
     Dates: start: 2009

REACTIONS (1)
  - White blood cell count decreased [Fatal]

NARRATIVE: CASE EVENT DATE: 20150427
